FAERS Safety Report 6936539-4 (Version None)
Quarter: 2010Q3

REPORT INFORMATION
  Report Type: 
  Country: None (occurrence: None)
  Receive Date: 20100823
  Receipt Date: 20100807
  Transmission Date: 20110219
  Serious: No
  Sender: FDA-Public Use
  Company Number: US-PFIZER INC-2010099772

PATIENT
  Sex: Female

DRUGS (5)
  1. CHANTIX [Suspect]
     Dosage: UNK
  2. VALPROIC ACID [Interacting]
     Dosage: UNK
  3. LEVETIRACETAM [Interacting]
     Dosage: UNK
  4. PHENOBARBITAL TAB [Interacting]
     Dosage: UNK
  5. LEXAPRO [Interacting]
     Dosage: UNK

REACTIONS (3)
  - CONSTIPATION [None]
  - DRUG INTERACTION [None]
  - SOMNOLENCE [None]
